FAERS Safety Report 18704720 (Version 1)
Quarter: 2021Q1

REPORT INFORMATION
  Report Type: Spontaneous
  Country: ES (occurrence: ES)
  Receive Date: 20210106
  Receipt Date: 20210106
  Transmission Date: 20210419
  Serious: Yes (Congenital Anomaly)
  Sender: FDA-Public Use
  Company Number: ES-TEVA-2020-ES-1864426

PATIENT
  Age: 0 Year
  Sex: Female

DRUGS (1)
  1. FLUOXETINA (2331A) [Suspect]
     Active Substance: FLUOXETINE HYDROCHLORIDE
     Route: 065
     Dates: start: 20190909, end: 202009

REACTIONS (4)
  - Eosinophilia [Unknown]
  - Heart disease congenital [Unknown]
  - Exposure during pregnancy [Unknown]
  - Hypocalcaemia [Unknown]

NARRATIVE: CASE EVENT DATE: 2020
